FAERS Safety Report 15448592 (Version 1)
Quarter: 2018Q3

REPORT INFORMATION
  Report Type: Spontaneous
  Country: US (occurrence: US)
  Receive Date: 20180929
  Receipt Date: 20180929
  Transmission Date: 20181010
  Serious: No
  Sender: FDA-Public Use
  Company Number: US-009507513-1809USA005992

PATIENT
  Age: 66 Year
  Sex: Female

DRUGS (9)
  1. METFORMIN [Suspect]
     Active Substance: METFORMIN HYDROCHLORIDE
     Dosage: 500 MG, TWICE A DAY
  2. METFORMIN [Suspect]
     Active Substance: METFORMIN HYDROCHLORIDE
     Dosage: 500 MG, 3 TIMES A DAY
  3. ATORVASTATIN [Concomitant]
     Active Substance: ATORVASTATIN
  4. AMARYL [Suspect]
     Active Substance: GLIMEPIRIDE
  5. LEVOTHYROXINE SODIUM. [Concomitant]
     Active Substance: LEVOTHYROXINE SODIUM
  6. CALCIUM (UNSPECIFIED) [Concomitant]
     Active Substance: CALCIUM
  7. COZAAR [Suspect]
     Active Substance: LOSARTAN POTASSIUM
     Dosage: 1 PILL A DAY
     Route: 048
  8. METFORMIN [Suspect]
     Active Substance: METFORMIN HYDROCHLORIDE
     Dosage: 500 MG, TWICE A DAY
  9. METOPROLOL. [Concomitant]
     Active Substance: METOPROLOL

REACTIONS (5)
  - Vomiting [Recovered/Resolved]
  - Abdominal pain upper [Recovered/Resolved]
  - Drug intolerance [Unknown]
  - Diarrhoea [Recovered/Resolved]
  - Glycosylated haemoglobin increased [Not Recovered/Not Resolved]
